FAERS Safety Report 8388263-1 (Version None)
Quarter: 2012Q2

REPORT INFORMATION
  Report Type: 
  Country: None (occurrence: None)
  Receive Date: 20120525
  Receipt Date: 20120518
  Transmission Date: 20120825
  Serious: Yes (Disabling)
  Sender: FDA-Public Use
  Company Number: NO-PFIZER INC-2012105705

PATIENT
  Age: 16 Year
  Sex: Female

DRUGS (2)
  1. ZOLOFT [Suspect]
     Indication: ASTHENIA
     Dosage: 50 MG, 1X/DAY
     Route: 048
     Dates: start: 20090101, end: 20120201
  2. QUETIAPINE [Concomitant]
     Dosage: UNK
     Route: 048
     Dates: end: 20111201

REACTIONS (2)
  - COORDINATION ABNORMAL [None]
  - MUSCLE CONTRACTIONS INVOLUNTARY [None]
